FAERS Safety Report 18704708 (Version 1)
Quarter: 2021Q1

REPORT INFORMATION
  Report Type: Report from Study
  Country: None (occurrence: US)
  Receive Date: 20210106
  Receipt Date: 20210106
  Transmission Date: 20210419
  Serious: Yes (Other)
  Sender: FDA-Public Use
  Company Number: US-ABBVIE-21K-163-3715325-00

PATIENT
  Sex: Female

DRUGS (2)
  1. HUMIRA [Suspect]
     Active Substance: ADALIMUMAB
     Route: 058
     Dates: start: 2020
  2. HUMIRA [Suspect]
     Active Substance: ADALIMUMAB
     Indication: RHEUMATOID ARTHRITIS
     Route: 058
     Dates: end: 202009

REACTIONS (7)
  - Breast mass [Not Recovered/Not Resolved]
  - Mobility decreased [Recovering/Resolving]
  - Dyspnoea [Recovering/Resolving]
  - Diaphragmatic hernia [Recovering/Resolving]
  - Dementia Alzheimer^s type [Recovering/Resolving]
  - Feeling abnormal [Unknown]
  - Rheumatoid arthritis [Not Recovered/Not Resolved]

NARRATIVE: CASE EVENT DATE: 2020
